FAERS Safety Report 9752827 (Version 3)
Quarter: 2014Q1

REPORT INFORMATION
  Report Type: Spontaneous
  Country: JP (occurrence: JP)
  Receive Date: 20131213
  Receipt Date: 20140213
  Transmission Date: 20141002
  Serious: Yes (Life-Threatening)
  Sender: FDA-Public Use
  Company Number: JP-AMGEN-JPNSP2013087500

PATIENT
  Age: 76 Year
  Sex: Male

DRUGS (2)
  1. VECTIBIX [Suspect]
     Indication: COLON CANCER
     Dosage: 200 MG, Q3WK
     Route: 041
     Dates: start: 20131202, end: 20131202
  2. IRINOTECAN HYDROCHLORIDE [Concomitant]
     Indication: COLON CANCER
     Dosage: 220 MG, Q3WK
     Route: 041

REACTIONS (1)
  - Interstitial lung disease [Recovered/Resolved]
